FAERS Safety Report 11864775 (Version 1)
Quarter: 2015Q4

REPORT INFORMATION
  Report Type: Spontaneous
  Country: US (occurrence: US)
  Receive Date: 20151223
  Receipt Date: 20151223
  Transmission Date: 20160305
  Serious: Yes (Disabling, Other)
  Sender: FDA-Public Use
  Company Number: US-SA-2015SA213633

PATIENT
  Sex: Female

DRUGS (2)
  1. NOVOLOG [Concomitant]
     Active Substance: INSULIN ASPART
  2. LANTUS [Suspect]
     Active Substance: INSULIN GLARGINE
     Dosage: 40U IN MORNING AND 40U AT NIGHT. DOSE:40 UNIT(S)
     Route: 065
     Dates: start: 2003

REACTIONS (6)
  - Renal impairment [Unknown]
  - Disability [Unknown]
  - Drug administration error [Unknown]
  - Fluid retention [Unknown]
  - Weight increased [Unknown]
  - Blood glucose decreased [Unknown]
